FAERS Safety Report 10213455 (Version 1)
Quarter: 2014Q2

REPORT INFORMATION
  Report Type: Spontaneous
  Country: US (occurrence: None)
  Receive Date: 20140530
  Receipt Date: 20140530
  Transmission Date: 20141212
  Serious: Yes (Other)
  Sender: FDA-Public Use
  Company Number: 2014US00487

PATIENT
  Sex: 0

DRUGS (6)
  1. CARBOPLATIN (CARBOPLATIN) INJECTION [Suspect]
     Dosage: AREA UNDER THE CURVE OF 5 IV ON DAY 2
  2. RITUXIMAB (RITUXIMAB) [Suspect]
     Dosage: ON DAY 1
     Route: 042
  3. IFOSAMIDE [Suspect]
     Dosage: 5G/M2 OVER 24 H ON DAY 2, INTRAVENOUS
  4. MESNA (MESNA) [Suspect]
     Route: 042
  5. ETOPOSIDE (ETOPOSIDE) [Suspect]
     Dosage: ON DAYS 2 TO 4
     Route: 042
  6. LENALIDOMIDE (LENALIDOMIDE) (CAPSULE) (LENALIDOMIDE) [Suspect]

REACTIONS (3)
  - Performance status decreased [None]
  - Disease progression [None]
  - Diffuse large B-cell lymphoma [None]
